FAERS Safety Report 6602380-5 (Version None)
Quarter: 2010Q1

REPORT INFORMATION
  Report Type: 
  Country: None (occurrence: None)
  Receive Date: 20100225
  Receipt Date: 20100218
  Transmission Date: 20100710
  Serious: Yes (Hospitalization, Disabling)
  Sender: FDA-Public Use
  Company Number: B0489418A

PATIENT
  Sex: Male
  Weight: 69 kg

DRUGS (9)
  1. ARIXTRA [Suspect]
     Indication: THROMBOSIS PROPHYLAXIS
     Dosage: 2.5MG PER DAY
     Route: 058
     Dates: start: 20070926, end: 20070928
  2. NABOAL SR [Concomitant]
     Route: 048
     Dates: start: 20070926
  3. PARIET [Concomitant]
     Route: 048
     Dates: start: 20070926
  4. FLUMARIN [Concomitant]
     Dosage: 2G PER DAY
     Route: 042
     Dates: start: 20070925, end: 20070928
  5. PENTCILLIN [Concomitant]
     Dosage: 2G PER DAY
     Route: 042
     Dates: start: 20070925, end: 20070928
  6. ANTIHYPERTENSIVES [Concomitant]
  7. ANTI-HYPERLIPIDAEMIC (UNSPECIFIED) [Concomitant]
  8. NU-LOTAN [Concomitant]
     Indication: HYPERTENSION
     Dosage: 50MG PER DAY
     Route: 048
     Dates: end: 20070924
  9. LIPITOR [Concomitant]
     Dosage: 10MG PER DAY
     Route: 048
     Dates: end: 20070924

REACTIONS (12)
  - ACTIVATED PARTIAL THROMBOPLASTIN TIME PROLONGED [None]
  - ANAEMIA [None]
  - BLOOD UREA DECREASED [None]
  - DIZZINESS [None]
  - FIBRIN DEGRADATION PRODUCTS INCREASED [None]
  - HAEMATOCRIT DECREASED [None]
  - HAEMOGLOBIN DECREASED [None]
  - LOCAL SWELLING [None]
  - PLATELET COUNT INCREASED [None]
  - POST PROCEDURAL HAEMATOMA [None]
  - PROTEIN TOTAL DECREASED [None]
  - RED BLOOD CELL COUNT DECREASED [None]
